FAERS Safety Report 11171381 (Version 1)
Quarter: 2015Q2

REPORT INFORMATION
  Report Type: Spontaneous
  Country: US (occurrence: None)
  Receive Date: 20150515
  Receipt Date: 20150515
  Transmission Date: 20150821
  Serious: Yes (Other)
  Sender: FDA-Public Use
  Company Number: 103607U

PATIENT
  Age: 46 Year
  Sex: Female
  Weight: 86.2 kg

DRUGS (1)
  1. CIMZIA [Suspect]
     Active Substance: CERTOLIZUMAB PEGOL
     Indication: CROHN^S DISEASE
     Dosage: STARTING DOSE
     Route: 058
     Dates: start: 20131025, end: 20131029

REACTIONS (2)
  - Abdominal pain [None]
  - Injection site rash [None]

NARRATIVE: CASE EVENT DATE: 20131028
